FAERS Safety Report 6421371-0 (Version None)
Quarter: 2009Q4

REPORT INFORMATION
  Report Type: 
  Country: None (occurrence: None)
  Receive Date: 20091030
  Receipt Date: 20091024
  Transmission Date: 20100525
  Serious: Yes (Hospitalization, Other)
  Sender: FDA-Public Use
  Company Number: PHEH2009US14437

PATIENT
  Age: 27 Year
  Sex: Male

DRUGS (2)
  1. SANDIMMUNE [Suspect]
     Dosage: UNK
     Route: 042
  2. SANDIMMUNE [Suspect]
     Route: 042

REACTIONS (2)
  - INCORRECT ROUTE OF DRUG ADMINISTRATION [None]
  - MEDICATION ERROR [None]
